FAERS Safety Report 17420618 (Version 1)
Quarter: 2020Q1

REPORT INFORMATION
  Report Type: Report from Study
  Country: TW (occurrence: TW)
  Receive Date: 20200214
  Receipt Date: 20200214
  Transmission Date: 20200409
  Serious: Yes (Death, Life-Threatening, Hospitalization)
  Sender: FDA-Public Use
  Company Number: TW-ASTRAZENECA-2019SF18799

PATIENT
  Age: 23888 Day
  Sex: Male

DRUGS (13)
  1. CARBOPLATIN. [Suspect]
     Active Substance: CARBOPLATIN
     Indication: NON-SMALL CELL LUNG CANCER STAGE IV
     Dosage: 622.3 MG
     Route: 065
     Dates: start: 20190723, end: 20190723
  2. ACTEIN [Concomitant]
     Indication: SPUTUM DECREASED
     Route: 048
     Dates: start: 20190730, end: 20190813
  3. PARAMOL [Concomitant]
     Indication: CHEST PAIN
     Route: 048
     Dates: start: 20190730, end: 20190813
  4. MEGEST [Concomitant]
     Indication: DECREASED APPETITE
     Route: 048
     Dates: start: 20190703, end: 20190813
  5. DILTIAZEM. [Concomitant]
     Active Substance: DILTIAZEM
     Indication: SINUS TACHYCARDIA
     Route: 048
     Dates: start: 20190731
  6. NAB-PACLITAXEL [Suspect]
     Active Substance: PACLITAXEL
     Indication: NON-SMALL CELL LUNG CANCER STAGE IV
     Dosage: 164 MG
     Route: 042
     Dates: start: 20190723, end: 20190723
  7. NEBILET [Concomitant]
     Active Substance: NEBIVOLOL
     Indication: HYPERTENSION
     Route: 048
     Dates: start: 20190731, end: 20190817
  8. SPIRONOLACTONE. [Concomitant]
     Active Substance: SPIRONOLACTONE
     Indication: HYPERTENSION
     Route: 048
     Dates: start: 20190731, end: 20190810
  9. DURVALUMAB. [Suspect]
     Active Substance: DURVALUMAB
     Indication: NON-SMALL CELL LUNG CANCER STAGE IV
     Dosage: 1500 MG
     Route: 042
     Dates: start: 20190723, end: 20190723
  10. ROSITOL [Concomitant]
     Indication: HYPERTENSION
     Route: 048
     Dates: start: 20190731
  11. ZODENOX [Concomitant]
     Indication: INSOMNIA
     Route: 048
     Dates: start: 20190629, end: 20190703
  12. TRANSAMIN [Concomitant]
     Active Substance: TRANEXAMIC ACID
     Indication: HAEMOPTYSIS
     Route: 042
     Dates: start: 20190730, end: 20190806
  13. MEDICON-A [Concomitant]
     Indication: HAEMOPTYSIS
     Route: 048
     Dates: start: 20190703, end: 20190813

REACTIONS (2)
  - Hepatic failure [Not Recovered/Not Resolved]
  - Drug-induced liver injury [Not Recovered/Not Resolved]

NARRATIVE: CASE EVENT DATE: 20190802
